FAERS Safety Report 17468219 (Version 1)
Quarter: 2020Q1

REPORT INFORMATION
  Report Type: Spontaneous
  Country: KR (occurrence: KR)
  Receive Date: 20200227
  Receipt Date: 20200227
  Transmission Date: 20200409
  Serious: Yes (Other)
  Sender: FDA-Public Use
  Company Number: KR-TAKEDA-2018MPI011044

PATIENT
  Age: 5 Year

DRUGS (1)
  1. VELCADE [Suspect]
     Active Substance: BORTEZOMIB
     Indication: ACUTE LYMPHOCYTIC LEUKAEMIA
     Dosage: UNK
     Route: 065

REACTIONS (5)
  - Periventricular leukomalacia [Unknown]
  - Off label use [Unknown]
  - Eye movement disorder [Unknown]
  - Vomiting [Unknown]
  - Product use in unapproved indication [Unknown]
